FAERS Safety Report 23735204 (Version 2)
Quarter: 2024Q2

REPORT INFORMATION
  Report Type: Report from Study
  Country: US (occurrence: US)
  Receive Date: 20240412
  Receipt Date: 20240501
  Transmission Date: 20240716
  Serious: Yes (Other)
  Sender: FDA-Public Use
  Company Number: US-HORIZON THERAPEUTICS-HZN-2024-004100

PATIENT

DRUGS (8)
  1. TEPEZZA [Suspect]
     Active Substance: TEPROTUMUMAB-TRBW
     Indication: Endocrine ophthalmopathy
     Dosage: UNK, FIRST INFUSION
     Route: 042
     Dates: start: 20231115
  2. TEPEZZA [Suspect]
     Active Substance: TEPROTUMUMAB-TRBW
     Dosage: UNK, SECOND INFUSION
     Route: 042
     Dates: start: 20231206
  3. TEPEZZA [Suspect]
     Active Substance: TEPROTUMUMAB-TRBW
     Dosage: UNK, THIRD INFUSION
     Route: 042
     Dates: start: 20231228
  4. TEPEZZA [Suspect]
     Active Substance: TEPROTUMUMAB-TRBW
     Dosage: UNK, FOURTH INFUSION
     Route: 042
     Dates: start: 20240127
  5. TEPEZZA [Suspect]
     Active Substance: TEPROTUMUMAB-TRBW
     Dosage: UNK, FIFTH INFUSION
     Route: 042
     Dates: start: 20240221
  6. TEPEZZA [Suspect]
     Active Substance: TEPROTUMUMAB-TRBW
     Dosage: UNK, SIXTH INFUSION
     Route: 042
     Dates: start: 20240313
  7. TEPEZZA [Suspect]
     Active Substance: TEPROTUMUMAB-TRBW
     Dosage: UNK, SEVENTH INFUSION
     Route: 042
     Dates: start: 20240403
  8. TEPEZZA [Suspect]
     Active Substance: TEPROTUMUMAB-TRBW
     Dosage: UNK, EIGHTH INFUSION
     Route: 042
     Dates: start: 20240424

REACTIONS (2)
  - Erectile dysfunction [Not Recovered/Not Resolved]
  - Onychoclasis [Not Recovered/Not Resolved]
